FAERS Safety Report 4374435-X (Version None)
Quarter: 2004Q2

REPORT INFORMATION
  Report Type: 
  Country: None (occurrence: None)
  Receive Date: 20040609
  Receipt Date: 20040609
  Transmission Date: 20050107
  Serious: No
  Sender: FDA-Public Use
  Company Number: None

PATIENT
  Sex: Male
  Weight: 88 kg

DRUGS (10)
  1. ANTITHYMOCYTE GLOBULIN [Suspect]
     Indication: APLASTIC ANAEMIA
     Dosage: 3560 MG IV QD
     Route: 042
  2. PREVACID [Concomitant]
  3. CYCLOSPORINE [Concomitant]
  4. TEMAZEPAM [Concomitant]
  5. METHYLPREDNISOLONE [Concomitant]
  6. CEFEPIME [Concomitant]
  7. TYLENOL [Concomitant]
  8. BENADRYL [Concomitant]
  9. DOCUSATE [Concomitant]
  10. SENNA [Concomitant]

REACTIONS (10)
  - BLOOD PRESSURE SYSTOLIC INCREASED [None]
  - BODY TEMPERATURE DECREASED [None]
  - BODY TEMPERATURE INCREASED [None]
  - CHILLS [None]
  - CYANOSIS [None]
  - HEART RATE INCREASED [None]
  - PALLOR [None]
  - RASH MACULO-PAPULAR [None]
  - RESPIRATORY RATE INCREASED [None]
  - TREMOR [None]
